FAERS Safety Report 5714183-4 (Version None)
Quarter: 2008Q2

REPORT INFORMATION
  Report Type: 
  Country: None (occurrence: None)
  Receive Date: 20080423
  Receipt Date: 20071025
  Transmission Date: 20081010
  Serious: No
  Sender: FDA-Public Use
  Company Number: US-KINGPHARMUSA00001-K200701388

PATIENT

DRUGS (1)
  1. SKELAXIN [Suspect]
     Dosage: 800 MG, QHS
     Route: 048
     Dates: start: 20071001, end: 20071024

REACTIONS (2)
  - EYE IRRITATION [None]
  - POLLAKIURIA [None]
